FAERS Safety Report 11605958 (Version 2)
Quarter: 2015Q4

REPORT INFORMATION
  Report Type: Spontaneous
  Country: PL (occurrence: PL)
  Receive Date: 20151007
  Receipt Date: 20151009
  Transmission Date: 20160304
  Serious: Yes (Hospitalization, Other)
  Sender: FDA-Public Use
  Company Number: PL-GLAXOSMITHKLINE-PL2015GSK141080

PATIENT
  Age: 45 Year
  Sex: Male

DRUGS (1)
  1. VOTRIENT [Suspect]
     Active Substance: PAZOPANIB HYDROCHLORIDE
     Indication: SYNOVIAL SARCOMA
     Dosage: 800 MG, 1D
     Route: 048
     Dates: start: 201410, end: 201508

REACTIONS (10)
  - Pleural effusion [Unknown]
  - Pneumothorax [Recovered/Resolved]
  - Aspartate aminotransferase increased [Recovered/Resolved]
  - Dyspnoea [Recovered/Resolved with Sequelae]
  - Respiratory failure [Unknown]
  - Thoracic cavity drainage [Unknown]
  - Hypertension [Unknown]
  - Hair colour changes [Unknown]
  - Disease progression [Unknown]
  - Alanine aminotransferase increased [Recovered/Resolved]

NARRATIVE: CASE EVENT DATE: 201411
